FAERS Safety Report 9441072 (Version 1)
Quarter: 2013Q3

REPORT INFORMATION
  Report Type: Spontaneous
  Country: ES (occurrence: ES)
  Receive Date: 20130805
  Receipt Date: 20130805
  Transmission Date: 20140515
  Serious: Yes (Other)
  Sender: FDA-Public Use
  Company Number: ES-GILEAD-2013-0080612

PATIENT
  Age: 34 Year
  Sex: Female

DRUGS (2)
  1. EVIPLERA [Suspect]
     Indication: HIV INFECTION
     Dosage: 1 COMPRIMIDO/24 HORAS
     Route: 048
     Dates: start: 20130422, end: 20130722
  2. TRUVADA [Concomitant]
     Indication: HIV INFECTION
     Route: 048
     Dates: end: 20130421

REACTIONS (4)
  - Abdominal distension [Recovering/Resolving]
  - Pruritus [Recovering/Resolving]
  - Diarrhoea [Recovering/Resolving]
  - Nausea [Recovering/Resolving]
